FAERS Safety Report 21399464 (Version 1)
Quarter: 2022Q4

REPORT INFORMATION
  Report Type: Spontaneous
  Country: ES (occurrence: ES)
  Receive Date: 20221001
  Receipt Date: 20221001
  Transmission Date: 20230113
  Serious: Yes (Life-Threatening)
  Sender: FDA-Public Use
  Company Number: None

PATIENT
  Age: 8 Year
  Sex: Male

DRUGS (3)
  1. LEVOFLOXACIN [Suspect]
     Active Substance: LEVOFLOXACIN
     Indication: Myocarditis infectious
     Dosage: LEVOFLOXACINO (2791A), DURATION: 3 DAYS
     Route: 065
     Dates: start: 20220729, end: 20220731
  2. SULFAMETHOXAZOLE\TRIMETHOPRIM [Suspect]
     Active Substance: SULFAMETHOXAZOLE\TRIMETHOPRIM
     Indication: Infection prophylaxis
     Dosage: 160MG/ 800MG POWDER AND SOLUTION FOR SOLUTION FOR INJECTION, 5 VIALS + 5 AMPOULES, UNIT DOSE: 50MG,
     Route: 065
     Dates: start: 20220728, end: 20220731
  3. CIPROFLOXACIN [Suspect]
     Active Substance: CIPROFLOXACIN
     Indication: Myocarditis infectious
     Dosage: CIPROFLOXACINO (2049A), UNIT DOSE: 95MG, FREQUENCY TIME: 12 HOURS, DURATION: 3 DAYS
     Route: 065
     Dates: start: 20220727, end: 20220729

REACTIONS (1)
  - Metabolic acidosis [Recovered/Resolved]

NARRATIVE: CASE EVENT DATE: 20220801
